FAERS Safety Report 5581229-6 (Version None)
Quarter: 2007Q4

REPORT INFORMATION
  Report Type: 
  Country: None (occurrence: None)
  Receive Date: 20071130
  Receipt Date: 20070724
  Transmission Date: 20080405
  Serious: No
  Sender: FDA-Public Use
  Company Number: US200707005937

PATIENT
  Age: 57 Year
  Sex: Female
  Weight: 79.4 kg

DRUGS (10)
  1. BYETTA [Suspect]
     Indication: TYPE 2 DIABETES MELLITUS
     Dosage: 5 UG, 2/D, SUBCUTANEOUS ; 10 UG, 2/D, SUBCUTANEOUS
     Route: 058
     Dates: start: 20070604, end: 20070703
  2. BYETTA [Suspect]
     Indication: TYPE 2 DIABETES MELLITUS
     Dosage: 5 UG, 2/D, SUBCUTANEOUS ; 10 UG, 2/D, SUBCUTANEOUS
     Route: 058
     Dates: start: 20070704
  3. AVANDIA (RISIGLITAZONE MALEATE) [Concomitant]
  4. METFORMIN HCL [Concomitant]
  5. BENICAR [Concomitant]
  6. WELLBUTRIN XL [Concomitant]
  7. CYMBALTA [Concomitant]
  8. TRAZODONE HCL [Concomitant]
  9. PREVACID [Concomitant]
  10. SIMVASTATIN [Concomitant]

REACTIONS (5)
  - ABNORMAL FAECES [None]
  - DECREASED APPETITE [None]
  - INCREASED APPETITE [None]
  - SOMNOLENCE [None]
  - WEIGHT DECREASED [None]
